FAERS Safety Report 8904583 (Version 1)
Quarter: 2012Q4

REPORT INFORMATION
  Report Type: 
  Country: CA (occurrence: CA)
  Receive Date: 20121113
  Receipt Date: 20121113
  Transmission Date: 20130627
  Serious: Yes (Hospitalization, Other)
  Sender: FDA-Public Use
  Company Number: PHBS2001CA03034

PATIENT
  Age: 73 Year
  Sex: Female

DRUGS (3)
  1. EXELON [Suspect]
     Indication: DEMENTIA ALZHEIMER^S TYPE
     Dosage: 1.5 mg, BID
     Dates: start: 20010223, end: 20010301
  2. EXELON [Suspect]
     Dosage: 3 mg, BID
     Dates: start: 20010302, end: 20010308
  3. EXELON [Suspect]
     Dosage: 4.5 mg, BID
     Dates: start: 20010309

REACTIONS (7)
  - Upper limb fracture [Not Recovered/Not Resolved]
  - Syncope [Recovered/Resolved]
  - Fall [Not Recovered/Not Resolved]
  - Dizziness [Not Recovered/Not Resolved]
  - Headache [Not Recovered/Not Resolved]
  - Fatigue [Not Recovered/Not Resolved]
  - Nausea [Not Recovered/Not Resolved]
